FAERS Safety Report 6328152-7 (Version None)
Quarter: 2009Q3

REPORT INFORMATION
  Report Type: 
  Country: None (occurrence: None)
  Receive Date: 20090825
  Receipt Date: 20090127
  Transmission Date: 20100115
  Serious: No
  Sender: FDA-Public Use
  Company Number: US-ABBOTT-09P-163-0500515-00

PATIENT
  Sex: Female

DRUGS (3)
  1. SYNTHROID [Suspect]
     Indication: DRUG USE FOR UNKNOWN INDICATION
     Route: 048
  2. DIOVAN [Suspect]
     Indication: HYPERTENSION
  3. NORVASC [Suspect]
     Indication: HYPERTENSION

REACTIONS (2)
  - CONSTIPATION [None]
  - FEELING COLD [None]
